FAERS Safety Report 9689016 (Version 4)
Quarter: 2013Q4

REPORT INFORMATION
  Report Type: Report from Study
  Country: IT (occurrence: IT)
  Receive Date: 20131114
  Receipt Date: 20131223
  Transmission Date: 20140711
  Serious: Yes (Hospitalization, Other)
  Sender: FDA-Public Use
  Company Number: IT-PFIZER INC-2013321650

PATIENT
  Age: 56 Year
  Sex: Male
  Weight: 82 kg

DRUGS (4)
  1. BOSUTINIB [Suspect]
     Indication: CHRONIC MYELOID LEUKAEMIA
     Dosage: 300 MG, 1X/DAY
     Route: 048
     Dates: start: 20130730, end: 20131022
  2. BOSUTINIB [Suspect]
     Dosage: 200 MG, 1X/DAY
     Route: 048
     Dates: start: 20131030, end: 20131112
  3. FUROSEMIDE [Concomitant]
     Indication: HYPERTENSION
     Dosage: 175 MG, 1X/DAY
     Route: 048
  4. CALCIUM [Concomitant]
     Indication: PROPHYLAXIS
     Dosage: UNK, 1X/DAY
     Route: 048

REACTIONS (2)
  - Cardiac failure [Recovered/Resolved with Sequelae]
  - Nephrotic syndrome [Recovered/Resolved with Sequelae]
